FAERS Safety Report 6071228-2 (Version None)
Quarter: 2009Q1

REPORT INFORMATION
  Report Type: 
  Country: None (occurrence: None)
  Receive Date: 20090209
  Receipt Date: 20090128
  Transmission Date: 20090719
  Serious: Yes (Hospitalization)
  Sender: FDA-Public Use
  Company Number: AU-ELI_LILLY_AND_COMPANY-AU200901005065

PATIENT
  Age: 88 Year
  Sex: Female

DRUGS (2)
  1. CYMBALTA [Suspect]
     Dosage: 60 MG, UNK
  2. WARFARIN SODIUM [Concomitant]

REACTIONS (2)
  - DIZZINESS [None]
  - FALL [None]
